FAERS Safety Report 12817050 (Version 1)
Quarter: 2016Q4

REPORT INFORMATION
  Report Type: Spontaneous
  Country: US (occurrence: US)
  Receive Date: 20161005
  Receipt Date: 20161005
  Transmission Date: 20170207
  Serious: No
  Sender: FDA-Public Use
  Company Number: US-AMGEN-USASP2015105376

PATIENT
  Age: 73 Year
  Sex: Female
  Weight: 58 kg

DRUGS (1)
  1. PROLIA [Suspect]
     Active Substance: DENOSUMAB
     Indication: OSTEOPOROSIS
     Dosage: 60 MG, UNK
     Route: 030
     Dates: start: 20151006

REACTIONS (12)
  - Pruritus [Unknown]
  - Musculoskeletal discomfort [Unknown]
  - Groin pain [Recovering/Resolving]
  - Adverse drug reaction [Unknown]
  - Pain in extremity [Recovering/Resolving]
  - Papule [Unknown]
  - Weight decreased [Unknown]
  - Gait disturbance [Unknown]
  - Pain [Recovering/Resolving]
  - Back pain [Not Recovered/Not Resolved]
  - Incorrect route of drug administration [Unknown]
  - Arthralgia [Unknown]

NARRATIVE: CASE EVENT DATE: 201510
